FAERS Safety Report 16056701 (Version 1)
Quarter: 2019Q1

REPORT INFORMATION
  Report Type: Spontaneous
  Country: US (occurrence: US)
  Receive Date: 20190208
  Receipt Date: 20190208
  Transmission Date: 20190418
  Serious: Yes (Hospitalization)
  Sender: FDA-Public Use
  Company Number: None

PATIENT
  Age: 72 Year
  Sex: Female
  Weight: 72.6 kg

DRUGS (5)
  1. PROCHLORPERAZIN [Concomitant]
     Active Substance: PROCHLORPERAZINE
  2. OXYCODONE [Concomitant]
     Active Substance: OXYCODONE
  3. NIVOLUMAB 240MG [Suspect]
     Active Substance: NIVOLUMAB
     Indication: SOFT TISSUE SARCOMA
     Route: 042
     Dates: start: 20181217
  4. IPILIMUMAB [Suspect]
     Active Substance: IPILIMUMAB
     Indication: SOFT TISSUE SARCOMA
     Route: 042
     Dates: start: 20181217
  5. ALPRAZOLAM. [Concomitant]
     Active Substance: ALPRAZOLAM

REACTIONS (7)
  - Fatigue [None]
  - Hypophagia [None]
  - Retching [None]
  - Dysphagia [None]
  - Decreased appetite [None]
  - Nausea [None]
  - Cough [None]

NARRATIVE: CASE EVENT DATE: 20190206
